FAERS Safety Report 8814042 (Version 1)
Quarter: 2012Q4

REPORT INFORMATION
  Report Type: 
  Country: US (occurrence: US)
  Receive Date: 20120928
  Receipt Date: 20120928
  Transmission Date: 20130627
  Serious: No
  Sender: FDA-Public Use
  Company Number: US-PFIZER INC-2012240285

PATIENT
  Age: 44 Year
  Sex: Female

DRUGS (1)
  1. EFFEXOR XR [Suspect]
     Dosage: UNK

REACTIONS (9)
  - Withdrawal syndrome [Unknown]
  - Dizziness [Unknown]
  - Nausea [Unknown]
  - Vomiting [Unknown]
  - Panic attack [Unknown]
  - Malaise [Unknown]
  - Insomnia [Unknown]
  - Decreased appetite [Unknown]
  - Feeling abnormal [Unknown]
